FAERS Safety Report 14229226 (Version 1)
Quarter: 2017Q4

REPORT INFORMATION
  Report Type: Spontaneous
  Country: US (occurrence: None)
  Receive Date: 20171125
  Receipt Date: 20171125
  Transmission Date: 20180321
  Serious: Yes (Hospitalization)
  Sender: FDA-Public Use
  Company Number: None

PATIENT
  Age: 44 Year
  Sex: Male

DRUGS (1)
  1. AMPYRA [Suspect]
     Active Substance: DALFAMPRIDINE
     Indication: MULTIPLE SCLEROSIS
     Route: 048
     Dates: start: 20170110

REACTIONS (6)
  - Sepsis [None]
  - Urinary tract infection [None]
  - Asthenia [None]
  - Flank pain [None]
  - Klebsiella test positive [None]
  - Lethargy [None]

NARRATIVE: CASE EVENT DATE: 20171117
